FAERS Safety Report 15468767 (Version 2)
Quarter: 2020Q2

REPORT INFORMATION
  Report Type: Spontaneous
  Country: US (occurrence: US)
  Receive Date: 20181005
  Receipt Date: 20200427
  Transmission Date: 20200713
  Serious: Yes (Hospitalization, Other)
  Sender: FDA-Public Use
  Company Number: US-BRISTOL-MYERS SQUIBB COMPANY-BMS-2018-090966

PATIENT
  Age: 45 Year
  Sex: Female

DRUGS (1)
  1. ELIQUIS [Suspect]
     Active Substance: APIXABAN
     Indication: THROMBOSIS
     Dosage: 5 MG, BID
     Route: 048
     Dates: start: 201808, end: 20180921

REACTIONS (7)
  - Product expiration date issue [Unknown]
  - Intentional product use issue [Unknown]
  - Pulmonary embolism [Unknown]
  - Cardiac failure [Unknown]
  - Treatment failure [Unknown]
  - Product lot number issue [Unknown]
  - Product dose omission [Unknown]

NARRATIVE: CASE EVENT DATE: 201809
